FAERS Safety Report 7677629-0 (Version None)
Quarter: 2011Q3

REPORT INFORMATION
  Report Type: 
  Country: None (occurrence: None)
  Receive Date: 20110811
  Receipt Date: 20110729
  Transmission Date: 20111222
  Serious: Yes (Congenital Anomaly)
  Sender: FDA-Public Use
  Company Number: US-ELI_LILLY_AND_COMPANY-US201108002560

PATIENT

DRUGS (2)
  1. CYMBALTA [Suspect]
     Dosage: UNK UNK, QD
  2. LEVOTHYROXINE SODIUM [Concomitant]
     Dosage: UNK
     Route: 064
     Dates: start: 20110720

REACTIONS (2)
  - CONGENITAL ANOMALY [None]
  - MATERNAL EXPOSURE DURING PREGNANCY [None]
